FAERS Safety Report 5592850-3 (Version None)
Quarter: 2008Q1

REPORT INFORMATION
  Report Type: 
  Country: None (occurrence: None)
  Receive Date: 20080116
  Receipt Date: 20080108
  Transmission Date: 20080703
  Serious: Yes (Other)
  Sender: FDA-Public Use
  Company Number: PHFR2007GB03614

PATIENT
  Age: 37 Year
  Sex: Male

DRUGS (6)
  1. CLOZARIL [Suspect]
     Indication: SCHIZOPHRENIA
     Dosage: 300MG / DAY
     Route: 048
     Dates: start: 20071119
  2. ACAMPROSATE [Concomitant]
     Indication: ALCOHOLISM
     Dosage: 666 MG, TID
     Route: 048
  3. MOVICOL [Concomitant]
     Indication: CONSTIPATION
     Dosage: 1 SACHET / DAY
     Route: 048
  4. SENNA [Concomitant]
     Indication: CONSTIPATION
     Dosage: 15MG / DAY
     Route: 048
  5. FYBOGEL [Concomitant]
     Indication: CONSTIPATION
     Dosage: 2 SACHETS / DAY
     Route: 048
  6. HYOSCINE [Concomitant]
     Indication: SALIVARY HYPERSECRETION
     Dosage: 450MCG / DAY
     Route: 048

REACTIONS (6)
  - CONSTIPATION [None]
  - ELECTROCARDIOGRAM QT PROLONGED [None]
  - EOSINOPHIL COUNT INCREASED [None]
  - EOSINOPHILIA [None]
  - SALIVARY HYPERSECRETION [None]
  - TACHYCARDIA [None]
